FAERS Safety Report 20169768 (Version 2)
Quarter: 2022Q1

REPORT INFORMATION
  Report Type: Other
  Country: US (occurrence: None)
  Receive Date: 20211210
  Receipt Date: 20220307
  Transmission Date: 20220423
  Serious: Yes (Other)
  Sender: FDA-Public Use
  Company Number: US-ROCHE-2972702

PATIENT
  Age: 65 Year
  Sex: Female

DRUGS (2)
  1. TOCILIZUMAB [Suspect]
     Active Substance: TOCILIZUMAB
     Indication: Squamous cell carcinoma
     Route: 042
  2. PREDNISONE [Suspect]
     Active Substance: PREDNISONE
     Indication: Squamous cell carcinoma
     Dosage: 4 WEEKS
     Route: 065

REACTIONS (5)
  - Liver abscess [Unknown]
  - Adrenal insufficiency [Unknown]
  - Fungaemia [Unknown]
  - Cholangitis [Unknown]
  - Biliary obstruction [Unknown]
